FAERS Safety Report 18355662 (Version 7)
Quarter: 2024Q2

REPORT INFORMATION
  Report Type: Spontaneous
  Country: DE (occurrence: DE)
  Receive Date: 20201007
  Receipt Date: 20240402
  Transmission Date: 20240716
  Serious: Yes (Other)
  Sender: FDA-Public Use
  Company Number: None

PATIENT

DRUGS (12)
  1. METOPROLOL SUCCINATE [Suspect]
     Active Substance: METOPROLOL SUCCINATE
     Indication: Blood pressure increased
     Dosage: STARTED WITH A HALF TABLET, INCREASED TO TABLET, THEREAFTER TO 2
     Dates: start: 2020, end: 202007
  2. METOPROLOL SUCCINATE [Suspect]
     Active Substance: METOPROLOL SUCCINATE
     Indication: Hypertension
  3. RAMIPRIL [Suspect]
     Active Substance: RAMIPRIL
     Indication: Blood pressure increased
     Dosage: UNK UNK
     Route: 048
     Dates: start: 202003, end: 202003
  4. SPINRAZA [Suspect]
     Active Substance: NUSINERSEN
     Indication: Spinal muscular atrophy
     Dosage: 12 MILLIGRAM Q 4 MONTHS
     Route: 037
     Dates: start: 20190527
  5. SPINRAZA [Suspect]
     Active Substance: NUSINERSEN
     Indication: Product used for unknown indication
     Dosage: 12 MILLIGRAM Q 4 MONTHS
     Route: 037
     Dates: start: 20190527
  6. SPINRAZA [Suspect]
     Active Substance: NUSINERSEN
     Dosage: 12 MILLIGRAM (4 PER MONTH)
     Route: 037
     Dates: start: 20190527
  7. SPINRAZA [Suspect]
     Active Substance: NUSINERSEN
     Dosage: 12 MILLIGRAM (4 PER MONTH)
     Route: 037
     Dates: start: 20190527
  8. FINASTERIDE [Concomitant]
     Active Substance: FINASTERIDE
     Indication: Prostatic disorder
     Dosage: 1 MILLIGRAM UNKNOWN
     Route: 065
  9. AMITRIPTYLINE [Concomitant]
     Active Substance: AMITRIPTYLINE
     Indication: Pain
     Dosage: 75 MILLIGRAM
     Route: 048
  10. MORPHINE SULFATE [Concomitant]
     Active Substance: MORPHINE SULFATE
     Indication: Pain
     Dosage: 10 MILLIGRAM
     Route: 048
  11. OMEPRAZOLE [Concomitant]
     Active Substance: OMEPRAZOLE
     Indication: Gastritis
     Dosage: 20 MILLIGRAM
     Route: 048
  12. COMIRNATY (TOZINAMERAN) [Concomitant]
     Active Substance: TOZINAMERAN
     Indication: COVID-19 prophylaxis
     Dosage: SECOND SHOT
     Route: 065

REACTIONS (14)
  - Hypertension [Recovered/Resolved]
  - Post lumbar puncture syndrome [Recovered/Resolved]
  - Motor dysfunction [Recovered/Resolved]
  - Eye haemorrhage [Recovered/Resolved]
  - Epistaxis [Recovered/Resolved]
  - Migraine with aura [Recovered/Resolved]
  - Musculoskeletal disorder [Recovered/Resolved]
  - Fatigue [Recovered/Resolved]
  - Dizziness [Recovered/Resolved]
  - Photophobia [Recovered/Resolved]
  - Muscular weakness [Not Recovered/Not Resolved]
  - Exertional headache [Not Recovered/Not Resolved]
  - Accidental underdose [Recovered/Resolved]
  - Therapeutic response shortened [Recovered/Resolved]

NARRATIVE: CASE EVENT DATE: 20190924
